FAERS Safety Report 10296584 (Version 1)
Quarter: 2014Q3

REPORT INFORMATION
  Report Type: Spontaneous
  Country: US (occurrence: None)
  Receive Date: 20140708
  Receipt Date: 20140708
  Transmission Date: 20150326
  Serious: No
  Sender: FDA-Public Use
  Company Number: None

PATIENT
  Age: 62 Year
  Sex: Female
  Weight: 48.99 kg

DRUGS (9)
  1. KEPPRA XR [Concomitant]
     Active Substance: LEVETIRACETAM
  2. PLAVIX [Concomitant]
     Active Substance: CLOPIDOGREL BISULFATE
  3. FIBER CHOICE [Concomitant]
  4. FOLIC ACID. [Concomitant]
     Active Substance: FOLIC ACID
  5. OXYCODONE [Concomitant]
     Active Substance: OXYCODONE
  6. RECLAST [Concomitant]
     Active Substance: ZOLEDRONIC ACID
  7. B12 INJECTION [Concomitant]
  8. FENTANYL TRANSDERMAL SYSTEM [Suspect]
     Active Substance: FENTANYL
     Indication: PAIN
     Dosage: 25 MCG/HR?1 PATCH?1 PATCH EVER 72 HOURS?SKIN
     Route: 061
     Dates: start: 20140617, end: 20140619
  9. TOPAMAX [Concomitant]
     Active Substance: TOPIRAMATE

REACTIONS (1)
  - Diarrhoea [None]

NARRATIVE: CASE EVENT DATE: 20140617
